FAERS Safety Report 12327758 (Version 1)
Quarter: 2016Q2

REPORT INFORMATION
  Report Type: Spontaneous
  Country: CH (occurrence: FR)
  Receive Date: 20160503
  Receipt Date: 20160503
  Transmission Date: 20160815
  Serious: Yes (Hospitalization)
  Sender: FDA-Public Use
  Company Number: CH-LPDUSPRD-20160367

PATIENT
  Age: 82 Year
  Sex: Female

DRUGS (12)
  1. DOLIPRANE [Concomitant]
     Active Substance: ACETAMINOPHEN
     Dosage: DOSE NOT PROVIDED
     Route: 065
  2. KARDEGIC [Concomitant]
     Active Substance: ASPIRIN LYSINE
     Dosage: DOSE NOT PROVIDED
     Route: 065
  3. VENOFER [Suspect]
     Active Substance: IRON SUCROSE
     Dosage: DOSE NOT PROVIDED
     Route: 041
     Dates: start: 20160127, end: 20160127
  4. LANZOR [Concomitant]
     Active Substance: LANSOPRAZOLE
     Dosage: DOSE NOT PROVIDED
     Route: 065
  5. CYMBALTA [Concomitant]
     Active Substance: DULOXETINE HYDROCHLORIDE
     Dosage: DOSE NOT PROVIDED
     Route: 065
  6. TRIATEC [Concomitant]
     Active Substance: RAMIPRIL
     Dosage: DOSE NOT PROVIDED
     Route: 065
  7. CARDENSIEL [Concomitant]
     Active Substance: BISOPROLOL FUMARATE
     Dosage: DOSE NOT PROVIDED
     Route: 065
  8. BRILIQUE [Concomitant]
     Active Substance: TICAGRELOR
     Dosage: DOSE NOT PROVIDED
     Route: 065
  9. LAROXYL [Concomitant]
     Active Substance: AMITRIPTYLINE
     Dosage: DOSE NOT PROVIDED
     Route: 065
  10. LANTUS SOLOSTAR [Concomitant]
     Active Substance: INSULIN GLARGINE
     Dosage: 100 U/ML
     Route: 065
  11. DUROGESIC [Concomitant]
     Active Substance: FENTANYL
     Dosage: 75 MCG/H (12.6 MG/31.5 CM 2)
     Route: 065
  12. LERCAN [Concomitant]
     Active Substance: LERCANIDIPINE
     Dosage: DOSE NOT PROVIDED
     Route: 065

REACTIONS (8)
  - Atrial fibrillation [Unknown]
  - Ventricular dysfunction [Unknown]
  - Heart rate increased [Unknown]
  - Blood pressure increased [Recovered/Resolved]
  - Pain [Unknown]
  - Troponin increased [Recovered/Resolved]
  - Coronary artery disease [Unknown]
  - Chest pain [Recovered/Resolved]

NARRATIVE: CASE EVENT DATE: 2016
